FAERS Safety Report 7060372-9 (Version None)
Quarter: 2010Q4

REPORT INFORMATION
  Report Type: 
  Country: None (occurrence: None)
  Receive Date: 20101025
  Receipt Date: 20101020
  Transmission Date: 20110411
  Serious: Yes (Hospitalization)
  Sender: FDA-Public Use
  Company Number: JP-BAYER-201015230BYL

PATIENT
  Age: 44 Year
  Sex: Female

DRUGS (3)
  1. ASPIRIN [Suspect]
     Indication: ANTICOAGULANT THERAPY
     Route: 048
  2. WARFARIN SODIUM [Suspect]
     Indication: ANTICOAGULANT THERAPY
     Route: 048
  3. HEPARIN [Suspect]
     Indication: ANTICOAGULANT THERAPY
     Route: 041

REACTIONS (3)
  - HYDROCEPHALUS [None]
  - SUBARACHNOID HAEMORRHAGE [None]
  - SUBDURAL HAEMATOMA [None]
